FAERS Safety Report 9379504 (Version 1)
Quarter: 2013Q3

REPORT INFORMATION
  Report Type: Spontaneous
  Country: GB (occurrence: GB)
  Receive Date: 20130702
  Receipt Date: 20130702
  Transmission Date: 20140515
  Serious: Yes (Hospitalization)
  Sender: FDA-Public Use
  Company Number: GB-PFIZER INC-2013190935

PATIENT
  Age: 7 Decade
  Sex: Male

DRUGS (17)
  1. HYDROCORTISONE SODIUM SUCCINATE [Suspect]
     Dosage: 100MG
     Route: 042
     Dates: start: 20130610
  2. HYDROCORTISONE SODIUM SUCCINATE [Suspect]
     Dosage: 50 MG, UNK
     Route: 042
  3. ENOXAPARIN [Concomitant]
     Dosage: UNK
  4. FUROSEMIDE [Concomitant]
     Dosage: UNK
  5. LANSOPRAZOLE [Concomitant]
     Dosage: UNK
  6. MACROGOL [Concomitant]
     Dosage: UNK
  7. DERMOL [Concomitant]
     Dosage: UNK
  8. PARAFFIN, LIQUID [Concomitant]
     Dosage: UNK
  9. SANDO K [Concomitant]
     Dosage: UNK
  10. PARACETAMOL [Concomitant]
     Dosage: UNK
  11. CALCICHEW-D3 [Concomitant]
  12. TAMSULOSIN [Concomitant]
     Dosage: UNK
  13. ALENDRONATE SODIUM [Concomitant]
     Dosage: UNK
  14. ENALAPRIL [Concomitant]
     Dosage: UNK
  15. PROCHLORPERAZINE MALEATE [Concomitant]
  16. CHOLESTYRAMINE RESIN [Concomitant]
     Dosage: UNK
  17. PREDNISOLONE [Concomitant]
     Dosage: UNK

REACTIONS (4)
  - Substance-induced psychotic disorder [Recovering/Resolving]
  - Agitation [Unknown]
  - Delusion [Recovering/Resolving]
  - Hallucination, auditory [Unknown]
